FAERS Safety Report 21770473 (Version 1)
Quarter: 2022Q4

REPORT INFORMATION
  Report Type: Spontaneous
  Country: JP (occurrence: JP)
  Receive Date: 20221223
  Receipt Date: 20221223
  Transmission Date: 20230113
  Serious: Yes (Hospitalization)
  Sender: FDA-Public Use
  Company Number: JP-JNJFOC-20221239692

PATIENT

DRUGS (2)
  1. MIGLUSTAT [Suspect]
     Active Substance: MIGLUSTAT
     Indication: Product used for unknown indication
     Dosage: DOSE UNKNOWN
     Route: 048
  2. MIGLUSTAT [Suspect]
     Active Substance: MIGLUSTAT
     Indication: Product used for unknown indication
     Dosage: DOSE UNKNOWN
     Route: 051

REACTIONS (2)
  - Hospitalisation [Unknown]
  - Off label use [Unknown]
